FAERS Safety Report 15784445 (Version 1)
Quarter: 2019Q1

REPORT INFORMATION
  Report Type: Spontaneous
  Country: US (occurrence: US)
  Receive Date: 20190103
  Receipt Date: 20190103
  Transmission Date: 20190417
  Serious: No
  Sender: FDA-Public Use
  Company Number: US-ASTRAZENECA-2018SF60017

PATIENT
  Sex: Male
  Weight: 72.6 kg

DRUGS (4)
  1. COREG [Concomitant]
     Active Substance: CARVEDILOL
     Indication: VASOCONSTRICTION
  2. ASPIRIN. [Concomitant]
     Active Substance: ASPIRIN
     Indication: PROPHYLAXIS
  3. GENERIC LIPITOR [Concomitant]
     Active Substance: ATORVASTATIN CALCIUM
  4. BRILINTA [Suspect]
     Active Substance: TICAGRELOR
     Indication: STENT PLACEMENT
     Route: 048
     Dates: start: 201711

REACTIONS (11)
  - Contusion [Recovered/Resolved]
  - Product label issue [Unknown]
  - Dry skin [Unknown]
  - Arthralgia [Unknown]
  - Inflammation [Unknown]
  - Skin wrinkling [Unknown]
  - Epistaxis [Recovered/Resolved]
  - Haemorrhage [Unknown]
  - Off label use [Unknown]
  - Gout [Unknown]
  - Product use issue [Unknown]
